FAERS Safety Report 9393482 (Version 1)
Quarter: 2013Q3

REPORT INFORMATION
  Report Type: Spontaneous
  Country: JP (occurrence: JP)
  Receive Date: 20130710
  Receipt Date: 20130710
  Transmission Date: 20140515
  Serious: Yes (Other)
  Sender: FDA-Public Use
  Company Number: PHHY2013JP072536

PATIENT
  Sex: Female

DRUGS (10)
  1. RIBAVIRIN [Suspect]
     Indication: VIRAEMIA
     Dosage: 400 MG, QD
  2. TELAVIC [Suspect]
     Indication: VIRAEMIA
     Dosage: 1500 MG, QD
  3. PEGINTERFERON ALFA-2B [Suspect]
     Indication: VIRAEMIA
     Dosage: 1.5 UG/KG, QW
  4. CLOPIDOGREL SULFATE [Concomitant]
  5. AMLODIPINE BESILATE [Concomitant]
  6. ASPIRIN [Concomitant]
  7. IFENPRODIL TARTRATE [Concomitant]
  8. OMEPRAZOLE [Concomitant]
  9. BROTIZOLAM [Concomitant]
  10. ALLOPURINOL [Concomitant]

REACTIONS (11)
  - Sepsis [Recovering/Resolving]
  - Neutrophil count decreased [Recovered/Resolved]
  - Septic shock [Recovering/Resolving]
  - Altered state of consciousness [Recovering/Resolving]
  - Blood pressure decreased [Recovering/Resolving]
  - Escherichia infection [Recovering/Resolving]
  - Pyrexia [Recovering/Resolving]
  - Disorientation [Recovering/Resolving]
  - Restlessness [Recovering/Resolving]
  - Pruritus [Recovering/Resolving]
  - Rash [Recovered/Resolved]
